FAERS Safety Report 15208149 (Version 1)
Quarter: 2018Q3

REPORT INFORMATION
  Report Type: Report from Study
  Country: US (occurrence: US)
  Receive Date: 20180727
  Receipt Date: 20180727
  Transmission Date: 20181010
  Serious: Yes (Hospitalization)
  Sender: FDA-Public Use
  Company Number: PHHO2018US006408

PATIENT
  Age: 46 Year
  Sex: Female
  Weight: 47.2 kg

DRUGS (4)
  1. NAVITOCLAX [Suspect]
     Active Substance: NAVITOCLAX
     Dosage: 150 MG (D 1?7)
     Route: 048
     Dates: start: 20180427
  2. NAVITOCLAX [Suspect]
     Active Substance: NAVITOCLAX
     Indication: NEOPLASM
     Dosage: 150 MG (D 1?7)
     Route: 048
     Dates: start: 20180410, end: 20180418
  3. GSK1120212 [Suspect]
     Active Substance: TRAMETINIB
     Indication: NEOPLASM
     Dosage: 2 MG (DAY1 TO 14)
     Route: 048
     Dates: start: 20180410, end: 20180418
  4. GSK1120212 [Suspect]
     Active Substance: TRAMETINIB
     Dosage: 2 MG (DAY1 TO 14)
     Route: 048
     Dates: start: 20180508

REACTIONS (5)
  - Sepsis [Recovered/Resolved]
  - Pyrexia [Not Recovered/Not Resolved]
  - Enterocolitis [Not Recovered/Not Resolved]
  - Hypotension [Not Recovered/Not Resolved]
  - Blood bilirubin increased [Not Recovered/Not Resolved]

NARRATIVE: CASE EVENT DATE: 20180419
